FAERS Safety Report 9154485 (Version 1)
Quarter: 2013Q1

REPORT INFORMATION
  Report Type: Report from Study
  Country: US (occurrence: US)
  Receive Date: 20130311
  Receipt Date: 20130311
  Transmission Date: 20140127
  Serious: No
  Sender: FDA-Public Use
  Company Number: US-ABBOTT-12P-163-0959086-00

PATIENT
  Sex: Female

DRUGS (4)
  1. LUPRON DEPOT 11.25 MG [Suspect]
     Indication: UTERINE LEIOMYOMA
     Dates: start: 201106
  2. BENADRYL [Concomitant]
     Indication: HYPERSENSITIVITY
  3. IRON [Concomitant]
     Indication: MINERAL SUPPLEMENTATION
  4. SYNTHROID [Concomitant]
     Indication: THYROID DISORDER

REACTIONS (1)
  - Hot flush [Not Recovered/Not Resolved]
